FAERS Safety Report 18048631 (Version 1)
Quarter: 2020Q3

REPORT INFORMATION
  Report Type: Other
  Country: CA (occurrence: CA)
  Receive Date: 20200721
  Receipt Date: 20200721
  Transmission Date: 20201103
  Serious: Yes (Death, Other)
  Sender: FDA-Public Use
  Company Number: CA-APOTEX-2020AP013725

PATIENT
  Age: 59 Year
  Sex: Female

DRUGS (1)
  1. PENTOXIFYLLINE. [Suspect]
     Active Substance: PENTOXIFYLLINE
     Indication: ANTICOAGULANT THERAPY
     Dosage: UNK
     Route: 065

REACTIONS (4)
  - Cerebrovascular accident [Fatal]
  - Aneurysm [Fatal]
  - Myocardial infarction [Fatal]
  - Hypertension [Fatal]
